FAERS Safety Report 6882710-X (Version None)
Quarter: 2010Q3

REPORT INFORMATION
  Report Type: 
  Country: None (occurrence: None)
  Receive Date: 20100729
  Receipt Date: 20100719
  Transmission Date: 20110219
  Serious: Yes (Other)
  Sender: FDA-Public Use
  Company Number: NL-ROCHE-716614

PATIENT
  Age: 70 Year
  Sex: Male

DRUGS (3)
  1. CAPECITABINE [Suspect]
     Indication: GASTRIC CANCER
     Dosage: PRE SURGERY THERAPY
     Route: 065
  2. EPIRUBICIN [Suspect]
     Indication: GASTRIC CANCER
     Route: 065
  3. CISPLATIN [Suspect]
     Indication: GASTRIC CANCER
     Route: 065

REACTIONS (5)
  - ANAEMIA [None]
  - FATIGUE [None]
  - NAUSEA [None]
  - OTOTOXICITY [None]
  - THROMBOSIS [None]
